FAERS Safety Report 10191666 (Version 1)
Quarter: 2014Q2

REPORT INFORMATION
  Report Type: Spontaneous
  Country: CZ (occurrence: None)
  Receive Date: 20140521
  Receipt Date: 20140521
  Transmission Date: 20141212
  Serious: Yes (Hospitalization)
  Sender: FDA-Public Use
  Company Number: FK201401784

PATIENT
  Age: 50 Year
  Sex: Male

DRUGS (3)
  1. HEPARIN SODIUM [Suspect]
     Indication: DEEP VEIN THROMBOSIS
     Route: 041
  2. HEPARIN SODIUM [Suspect]
     Indication: INFUSION
     Route: 041
  3. LOW MOLECULAR HEPARIN [Suspect]
     Indication: DEEP VEIN THROMBOSIS

REACTIONS (6)
  - Megacolon [None]
  - Ileus paralytic [None]
  - Colitis ulcerative [None]
  - Oliguria [None]
  - Hypotension [None]
  - Pulmonary embolism [None]
